FAERS Safety Report 17418148 (Version 3)
Quarter: 2020Q1

REPORT INFORMATION
  Report Type: Report from Study
  Country: None (occurrence: US)
  Receive Date: 20200213
  Receipt Date: 20200306
  Transmission Date: 20200409
  Serious: Yes (Hospitalization, Other)
  Sender: FDA-Public Use
  Company Number: US-ABBVIE-20K-163-3272801-00

PATIENT
  Age: 61 Year
  Sex: Male

DRUGS (4)
  1. VENCLEXTA [Suspect]
     Active Substance: VENETOCLAX
     Route: 048
     Dates: start: 20200210
  2. VENCLEXTA [Suspect]
     Active Substance: VENETOCLAX
     Dosage: 200 MG DAY 2
     Route: 048
     Dates: start: 20200204, end: 20200204
  3. VENCLEXTA [Suspect]
     Active Substance: VENETOCLAX
     Dosage: 400 MG DAILY
     Route: 048
     Dates: start: 20200203, end: 20200204
  4. VENCLEXTA [Suspect]
     Active Substance: VENETOCLAX
     Indication: ACUTE MYELOID LEUKAEMIA
     Dosage: 100 MG DAY 1
     Route: 048
     Dates: start: 20200203, end: 20200203

REACTIONS (6)
  - Influenza [Unknown]
  - Nasopharyngitis [Unknown]
  - Platelet count decreased [Unknown]
  - Leukaemia [Unknown]
  - Fall [Unknown]
  - Blood count abnormal [Unknown]

NARRATIVE: CASE EVENT DATE: 202002
